FAERS Safety Report 9267612 (Version 1)
Quarter: 2013Q2

REPORT INFORMATION
  Report Type: Spontaneous
  Country: IT (occurrence: IT)
  Receive Date: 20130502
  Receipt Date: 20130502
  Transmission Date: 20140414
  Serious: Yes (Hospitalization)
  Sender: FDA-Public Use
  Company Number: IT-VERTEX PHARMACEUTICALS INC-2013-005656

PATIENT
  Age: 60 Year
  Sex: Male

DRUGS (1)
  1. INCIVO [Suspect]
     Indication: CHRONIC HEPATITIS
     Route: 048
     Dates: start: 20130307, end: 20130412

REACTIONS (3)
  - Pyrexia [Recovered/Resolved]
  - Blister [Recovered/Resolved]
  - Rash maculo-papular [Recovered/Resolved]
